FAERS Safety Report 21952687 (Version 1)
Quarter: 2023Q1

REPORT INFORMATION
  Report Type: Spontaneous
  Country: BE (occurrence: BE)
  Receive Date: 20230203
  Receipt Date: 20230203
  Transmission Date: 20230418
  Serious: Yes (Hospitalization, Other)
  Sender: FDA-Public Use
  Company Number: BE-Accord-296736

PATIENT
  Age: 79 Year
  Sex: Male

DRUGS (2)
  1. PACLITAXEL [Suspect]
     Active Substance: PACLITAXEL
     Indication: Breast cancer stage III
  2. TRASTUZUMAB [Suspect]
     Active Substance: TRASTUZUMAB
     Indication: Breast cancer stage III
     Dosage: EVERY 3 WEEKS, RESTARTED

REACTIONS (3)
  - Ulcerative keratitis [Recovered/Resolved]
  - Corneal disorder [Recovered/Resolved]
  - Conjunctival hyperaemia [Recovered/Resolved]
